FAERS Safety Report 8565874-1 (Version None)
Quarter: 2012Q3

REPORT INFORMATION
  Report Type: 
  Country: None (occurrence: None)
  Receive Date: 20120724
  Receipt Date: 20120713
  Transmission Date: 20120928
  Serious: Yes (Death)
  Sender: FDA-Public Use
  Company Number: 2012P1049669

PATIENT
  Age: 57 Year
  Sex: Female

DRUGS (2)
  1. MORPHINE SULFATE [Suspect]
  2. BUPIVACAINE HCL [Suspect]

REACTIONS (1)
  - DEATH [None]
